FAERS Safety Report 6321609-4 (Version None)
Quarter: 2009Q3

REPORT INFORMATION
  Report Type: 
  Country: None (occurrence: None)
  Receive Date: 20090824
  Receipt Date: 20090812
  Transmission Date: 20100115
  Serious: Yes (Hospitalization)
  Sender: FDA-Public Use
  Company Number: US-BAYER-200929758NA

PATIENT
  Sex: Female

DRUGS (5)
  1. LEUKINE [Suspect]
     Indication: COLON CANCER
     Dates: start: 20090804, end: 20090807
  2. PLAVIX [Concomitant]
  3. TOPROL-XL [Concomitant]
  4. FLUOROURACIL [Concomitant]
  5. AVASTIN [Concomitant]

REACTIONS (1)
  - BLOOD CREATININE INCREASED [None]
